FAERS Safety Report 21902530 (Version 1)
Quarter: 2023Q1

REPORT INFORMATION
  Report Type: Spontaneous
  Country: DE (occurrence: DE)
  Receive Date: 20230124
  Receipt Date: 20230124
  Transmission Date: 20230418
  Serious: Yes (Other)
  Sender: FDA-Public Use
  Company Number: DE-ALKEM LABORATORIES LIMITED-DE-ALKEM-2023-00265

PATIENT
  Sex: Female

DRUGS (3)
  1. FINGOLIMOD [Suspect]
     Active Substance: FINGOLIMOD
     Indication: Multiple sclerosis
     Dosage: 1 DOSAGE FORM, QD CAPSULE, HARD
     Route: 048
     Dates: end: 202205
  2. FINGOLIMOD [Suspect]
     Active Substance: FINGOLIMOD
     Dosage: 1 DOSAGE FORM, QD  CAPSULE, HARD
     Route: 048
     Dates: start: 2016, end: 2021
  3. FINGOLIMOD [Suspect]
     Active Substance: FINGOLIMOD
     Dosage: 1 DOSAGE FORM, QD CAPSULE, HARD
     Route: 048
     Dates: start: 202207, end: 202210

REACTIONS (7)
  - Multiple sclerosis relapse [Unknown]
  - Muscle spasticity [Unknown]
  - Lymphocyte count decreased [Recovered/Resolved]
  - Lymphocyte count decreased [Recovered/Resolved]
  - Overweight [Unknown]
  - Magnetic resonance imaging abnormal [Unknown]
  - Lymphocyte count decreased [Not Recovered/Not Resolved]

NARRATIVE: CASE EVENT DATE: 20210101
